FAERS Safety Report 21898220 (Version 4)
Quarter: 2024Q4

REPORT INFORMATION
  Report Type: Report from Study
  Country: CA (occurrence: CA)
  Receive Date: 20230123
  Receipt Date: 20241108
  Transmission Date: 20250115
  Serious: Yes (Other)
  Sender: PFIZER
  Company Number: CA-PFIZER INC-2021829914

PATIENT
  Age: 55 Year
  Sex: Male

DRUGS (40)
  1. LORAZEPAM [Suspect]
     Active Substance: LORAZEPAM
     Indication: Sleep disorder
     Dosage: UNK
  2. LORAZEPAM [Suspect]
     Active Substance: LORAZEPAM
     Dosage: UNK
  3. OCTREOTIDE ACETATE [Suspect]
     Active Substance: OCTREOTIDE ACETATE
     Indication: Carcinoid tumour
     Dosage: 50 UG TOTAL
     Route: 058
  4. OCTREOTIDE ACETATE [Suspect]
     Active Substance: OCTREOTIDE ACETATE
     Dosage: 60 MG, MONTHLY
     Route: 030
  5. OCTREOTIDE ACETATE [Suspect]
     Active Substance: OCTREOTIDE ACETATE
     Dosage: 40 MG, MONTHLY
     Route: 030
  6. OCTREOTIDE ACETATE [Suspect]
     Active Substance: OCTREOTIDE ACETATE
     Dosage: 60 MG, MONTHLY
     Route: 030
  7. OCTREOTIDE ACETATE [Suspect]
     Active Substance: OCTREOTIDE ACETATE
     Dosage: 60 MG, MONTHLY
     Route: 030
  8. OCTREOTIDE ACETATE [Suspect]
     Active Substance: OCTREOTIDE ACETATE
     Dosage: 60 MG, MONTHLY
     Route: 030
  9. OCTREOTIDE ACETATE [Suspect]
     Active Substance: OCTREOTIDE ACETATE
     Dosage: 60 MG, MONTHLY
     Route: 030
  10. OCTREOTIDE ACETATE [Suspect]
     Active Substance: OCTREOTIDE ACETATE
     Dosage: 60 UG, MONTHLY
     Route: 030
  11. OCTREOTIDE ACETATE [Suspect]
     Active Substance: OCTREOTIDE ACETATE
     Dosage: 60 MG, MONTHLY
     Route: 030
  12. OCTREOTIDE ACETATE [Suspect]
     Active Substance: OCTREOTIDE ACETATE
     Dosage: 50 UG
     Route: 058
  13. OCTREOTIDE ACETATE [Suspect]
     Active Substance: OCTREOTIDE ACETATE
     Dosage: 30 MG, MONTHLY
     Route: 030
  14. OCTREOTIDE ACETATE [Suspect]
     Active Substance: OCTREOTIDE ACETATE
     Dosage: 30 UG, MONTHLY
     Route: 030
  15. OCTREOTIDE ACETATE [Suspect]
     Active Substance: OCTREOTIDE ACETATE
     Dosage: 30 MG, MONTHLY
     Route: 030
  16. OCTREOTIDE ACETATE [Suspect]
     Active Substance: OCTREOTIDE ACETATE
     Dosage: 40 MG, MONTHLY
     Route: 030
  17. OCTREOTIDE ACETATE [Suspect]
     Active Substance: OCTREOTIDE ACETATE
     Dosage: 40 UG, MONTHLY
     Route: 030
  18. SANDOSTATIN [Suspect]
     Active Substance: OCTREOTIDE ACETATE
     Indication: Carcinoid tumour
     Dosage: 30 UG, MONTHLY
     Route: 030
  19. SANDOSTATIN [Suspect]
     Active Substance: OCTREOTIDE ACETATE
     Dosage: 60 UG, MONTHLY
     Route: 030
  20. SANDOSTATIN [Suspect]
     Active Substance: OCTREOTIDE ACETATE
     Dosage: 40 UG, MONTHLY
     Route: 030
  21. SANDOSTATIN [Suspect]
     Active Substance: OCTREOTIDE ACETATE
     Dosage: 30 MG, MONTHLY
     Route: 030
  22. SANDOSTATIN [Suspect]
     Active Substance: OCTREOTIDE ACETATE
     Dosage: 40 MG, MONTHLY
     Route: 030
  23. SANDOSTATIN [Suspect]
     Active Substance: OCTREOTIDE ACETATE
     Dosage: 60 MG, MONTHLY
     Route: 030
  24. SANDOSTATIN [Suspect]
     Active Substance: OCTREOTIDE ACETATE
     Dosage: 60 MG, MONTHLY
     Route: 030
  25. SANDOSTATIN [Suspect]
     Active Substance: OCTREOTIDE ACETATE
     Dosage: 60 MG, 1 EVERY 4 WEEKS
     Route: 042
  26. SANDOSTATIN [Suspect]
     Active Substance: OCTREOTIDE ACETATE
     Dosage: 30 MG, MONTHLY
     Route: 030
  27. SANDOSTATIN [Suspect]
     Active Substance: OCTREOTIDE ACETATE
     Dosage: 60 MG, MONTHLY
     Route: 030
  28. SANDOSTATIN [Suspect]
     Active Substance: OCTREOTIDE ACETATE
     Dosage: 60 MG, MONTHLY
     Route: 030
  29. SANDOSTATIN [Suspect]
     Active Substance: OCTREOTIDE ACETATE
     Dosage: 60 MG, MONTHLY
     Route: 030
  30. SANDOSTATIN [Suspect]
     Active Substance: OCTREOTIDE ACETATE
     Dosage: 40 MG, MONTHLY
     Route: 030
  31. SANDOSTATIN [Suspect]
     Active Substance: OCTREOTIDE ACETATE
     Dosage: 60 MG
     Route: 030
  32. MENINGOCOCCAL POLYSACCHARIDE VACCINE A NOS [Concomitant]
     Active Substance: MENINGOCOCCAL POLYSACCHARIDE VACCINE A\NEISSERIA MENINGITIDIS GROUP A CAPSULAR POLYSACCHARIDE ANTIGE
     Indication: Immunisation
     Dosage: UNK
  33. MENINGOCOCCAL POLYSACCHARIDE VACCINE A NOS [Concomitant]
     Active Substance: MENINGOCOCCAL POLYSACCHARIDE VACCINE A\NEISSERIA MENINGITIDIS GROUP A CAPSULAR POLYSACCHARIDE ANTIGE
     Dosage: UNK
  34. MENINGOCOCCAL POLYSACCHARIDE VACCINE A NOS [Concomitant]
     Active Substance: MENINGOCOCCAL POLYSACCHARIDE VACCINE A\NEISSERIA MENINGITIDIS GROUP A CAPSULAR POLYSACCHARIDE ANTIGE
     Dosage: UNK
  35. PNEUMOCOCCAL VACCINE, POLYVALENT 23 [Concomitant]
     Active Substance: PNEUMOCOCCAL VACCINE, POLYVALENT 23
     Indication: Immunisation
     Dosage: UNK
  36. PNEUMOCOCCAL VACCINE, POLYVALENT 23 [Concomitant]
     Active Substance: PNEUMOCOCCAL VACCINE, POLYVALENT 23
     Dosage: UNK
  37. PNEUMOCOCCAL VACCINE, POLYVALENT 23 [Concomitant]
     Active Substance: PNEUMOCOCCAL VACCINE, POLYVALENT 23
     Dosage: UNK
  38. ACETAMINOPHEN\TRAMADOL [Concomitant]
     Active Substance: ACETAMINOPHEN\TRAMADOL
     Dosage: UNK
  39. VITAMIN B12 [Concomitant]
     Active Substance: CYANOCOBALAMIN
     Dosage: UNK
     Route: 065
  40. CYANOCOBALAMIN [Concomitant]
     Active Substance: CYANOCOBALAMIN
     Route: 065

REACTIONS (36)
  - Arthralgia [Recovering/Resolving]
  - Arthritis [Recovering/Resolving]
  - Blood pressure increased [Recovering/Resolving]
  - Blood test abnormal [Recovering/Resolving]
  - Bone lesion [Recovering/Resolving]
  - Cough [Recovering/Resolving]
  - Diverticulitis [Recovering/Resolving]
  - Flushing [Recovering/Resolving]
  - Hepatic neoplasm [Recovering/Resolving]
  - Injection site pain [Recovering/Resolving]
  - Loss of consciousness [Recovering/Resolving]
  - Malignant neoplasm progression [Recovering/Resolving]
  - Metastases to spine [Recovering/Resolving]
  - Metastases to spleen [Recovering/Resolving]
  - Nasopharyngitis [Recovering/Resolving]
  - Nervousness [Recovering/Resolving]
  - Oropharyngeal pain [Recovering/Resolving]
  - Pain [Recovering/Resolving]
  - Pyrexia [Recovering/Resolving]
  - Splenic lesion [Recovering/Resolving]
  - Blood creatinine increased [Recovering/Resolving]
  - Erythema [Recovering/Resolving]
  - Pain in extremity [Recovering/Resolving]
  - Skin warm [Recovering/Resolving]
  - Asthenia [Recovering/Resolving]
  - Dyspnoea [Recovering/Resolving]
  - Malaise [Recovering/Resolving]
  - Heart rate increased [Recovering/Resolving]
  - General physical health deterioration [Recovering/Resolving]
  - Injection site discharge [Recovering/Resolving]
  - Mobility decreased [Recovering/Resolving]
  - Oedema [Recovering/Resolving]
  - Fatigue [Recovering/Resolving]
  - Pericardial effusion [Recovering/Resolving]
  - Peripheral swelling [Recovering/Resolving]
  - Incorrect dose administered [Recovering/Resolving]
